FAERS Safety Report 24138528 (Version 2)
Quarter: 2024Q3

REPORT INFORMATION
  Report Type: Report from Study
  Country: BR (occurrence: BR)
  Receive Date: 20240725
  Receipt Date: 20240729
  Transmission Date: 20241016
  Serious: Yes (Death, Hospitalization, Other)
  Sender: NOVARTIS
  Company Number: BR-002147023-NVSC2024BR148843

PATIENT
  Age: 61 Year
  Sex: Female

DRUGS (1)
  1. KISQALI [Suspect]
     Active Substance: RIBOCICLIB
     Indication: Breast cancer stage IV
     Dosage: UNK
     Route: 048

REACTIONS (4)
  - Emphysema [Fatal]
  - Gastric ulcer [Fatal]
  - Breast cancer stage IV [Fatal]
  - Malignant neoplasm progression [Fatal]

NARRATIVE: CASE EVENT DATE: 20240601
